FAERS Safety Report 5730596-9 (Version None)
Quarter: 2008Q2

REPORT INFORMATION
  Report Type: 
  Country: None (occurrence: None)
  Receive Date: 20080507
  Receipt Date: 20080429
  Transmission Date: 20081010
  Serious: Yes (Hospitalization)
  Sender: FDA-Public Use
  Company Number: B0517608A

PATIENT
  Age: 23 Year
  Sex: Male

DRUGS (1)
  1. MALARONE [Suspect]
     Indication: MALARIA PROPHYLAXIS
     Route: 048

REACTIONS (3)
  - GASTROINTESTINAL DISORDER [None]
  - MALARIA [None]
  - PLASMODIUM FALCIPARUM INFECTION [None]
